FAERS Safety Report 13721183 (Version 5)
Quarter: 2025Q2

REPORT INFORMATION
  Report Type: Other
  Country: IT (occurrence: IT)
  Receive Date: 20170706
  Receipt Date: 20250604
  Transmission Date: 20250716
  Serious: Yes (Hospitalization, Other)
  Sender: EMD SERONO INC
  Company Number: None

PATIENT
  Age: 36 Year
  Sex: Male

DRUGS (8)
  1. SOMATROPIN [Suspect]
     Active Substance: SOMATROPIN
     Indication: Muscle building therapy
     Dosage: 4.8 IU, QD
  2. NANDROLONE [Suspect]
     Active Substance: NANDROLONE
     Indication: Muscle building therapy
  3. RETINOL [Suspect]
     Active Substance: RETINOL
     Indication: Muscle building therapy
     Dosage: HIGH DOSAGE (40000 INTERNATIONAL UNITS THOUSANDS), QD 400 PERCENT D.V
  4. METHYLTESTOSTERONE [Suspect]
     Active Substance: METHYLTESTOSTERONE
     Indication: Muscle building therapy
     Dosage: FREQUENCY TEXT: 2-3 PER WEEK
  5. TRENBOLONE [Suspect]
     Active Substance: TRENBOLONE
     Indication: Muscle building therapy
     Dosage: UNIT DOSE: 2 TOTAL (TOTAL)
  6. INSULIN NOS [Suspect]
     Active Substance: INSULIN NOS
     Indication: Muscle building therapy
  7. CHORIONIC GONADOTROPHIN [Suspect]
     Active Substance: CHORIOGONADOTROPIN ALFA
     Indication: Muscle building therapy
  8. SOMATROPIN [Suspect]
     Active Substance: SOMATROPIN
     Indication: Off label use

REACTIONS (5)
  - Vision blurred [Unknown]
  - Papilloedema [Unknown]
  - Headache [Unknown]
  - Intracranial pressure increased [Unknown]
  - Drug abuse [Unknown]
